FAERS Safety Report 8876933 (Version 1)
Quarter: 2012Q4

REPORT INFORMATION
  Report Type: Spontaneous
  Country: US (occurrence: None)
  Receive Date: 20121024
  Receipt Date: 20121024
  Transmission Date: 20130627
  Serious: Yes (Disabling, Other)
  Sender: FDA-Public Use
  Company Number: FK201203132

PATIENT
  Age: 12 Year
  Sex: Female

DRUGS (10)
  1. CYTARABINE [Suspect]
     Indication: ACUTE LYMPHOCYTIC LEUKAEMIA
     Route: 037
  2. METHOTREXATE [Suspect]
     Route: 037
  3. CYCLOPHOSPHAMIDE [Suspect]
  4. DOXORUBICIN [Suspect]
  5. MERCAPTOPURINE [Suspect]
  6. DEXAMETHASONE INJECTION (MANUFACTURER UNKNOWN)(DEXAMETHASONE SODIUM PHOSPHATE)(DEXAMETHASONE SODIUM^PHOSPHATE) [Suspect]
  7. DAUNORUBICIN [Suspect]
  8. PEGASPARGASE [Suspect]
  9. THIOGUANINE [Suspect]
  10. VINCRISTINE (VINCRISTINE) (VINCRISTINE) [Suspect]

REACTIONS (3)
  - Osteonecrosis [None]
  - Limb asymmetry [None]
  - Trendelenburg^s symptom [None]
